FAERS Safety Report 9089614 (Version 1)
Quarter: 2013Q1

REPORT INFORMATION
  Report Type: Spontaneous
  Country: AR (occurrence: AR)
  Receive Date: 20130218
  Receipt Date: 20130218
  Transmission Date: 20140127
  Serious: Yes (Other)
  Sender: FDA-Public Use
  Company Number: PHHY2012AR127461

PATIENT
  Age: 70 Year
  Sex: Male

DRUGS (1)
  1. EXFORGE [Suspect]
     Dosage: (80 MG VALS AND 5 MG AMLO)
     Route: 048

REACTIONS (1)
  - Retinal vascular thrombosis [Not Recovered/Not Resolved]
